FAERS Safety Report 17218890 (Version 9)
Quarter: 2021Q2

REPORT INFORMATION
  Report Type: Report from Study
  Country: FR (occurrence: FR)
  Receive Date: 20191231
  Receipt Date: 20210619
  Transmission Date: 20210716
  Serious: Yes (Hospitalization, Other)
  Sender: FDA-Public Use
  Company Number: NVSC2019FR081749

PATIENT
  Age: 79 Year
  Sex: Female
  Weight: 57 kg

DRUGS (42)
  1. ADOPORT [Suspect]
     Active Substance: TACROLIMUS
     Dosage: 7.5 MG
     Route: 048
     Dates: start: 20191130, end: 20191201
  2. BROMAZEPAM [Concomitant]
     Active Substance: BROMAZEPAM
     Indication: PRODUCT USED FOR UNKNOWN INDICATION
     Dosage: UNK
     Route: 065
     Dates: start: 20191126, end: 20191201
  3. BASILIXIMAB [Concomitant]
     Active Substance: BASILIXIMAB
     Dosage: UNK
     Route: 065
     Dates: start: 20191129, end: 20191129
  4. BACTRIM [Concomitant]
     Active Substance: SULFAMETHOXAZOLE\TRIMETHOPRIM
     Indication: PRODUCT USED FOR UNKNOWN INDICATION
     Dosage: UNK
     Route: 065
     Dates: start: 20191129
  5. LERCANIDIPINE [Concomitant]
     Active Substance: LERCANIDIPINE
     Indication: PRODUCT USED FOR UNKNOWN INDICATION
     Dosage: UNK
     Route: 065
     Dates: start: 20191130
  6. ADOPORT [Suspect]
     Active Substance: TACROLIMUS
     Dosage: 8 MG
     Route: 048
     Dates: start: 20191126, end: 20191127
  7. ADOPORT [Suspect]
     Active Substance: TACROLIMUS
     Dosage: 11 MG
     Route: 065
     Dates: start: 20191203, end: 20191204
  8. ADOPORT [Suspect]
     Active Substance: TACROLIMUS
     Dosage: 12 MG
     Route: 065
     Dates: start: 20191204, end: 20191205
  9. ADOPORT [Suspect]
     Active Substance: TACROLIMUS
     Dosage: 9 MG
     Route: 048
     Dates: start: 20200425
  10. ADOPORT [Suspect]
     Active Substance: TACROLIMUS
     Dosage: 9 MG
     Route: 065
  11. PANTOPRAZOLE [Concomitant]
     Active Substance: PANTOPRAZOLE
     Indication: PRODUCT USED FOR UNKNOWN INDICATION
     Dosage: UNK
     Route: 065
     Dates: start: 20191128
  12. MOVICOL [Concomitant]
     Active Substance: POLYETHYLENE GLYCOL 3350\POTASSIUM CHLORIDE\SODIUM BICARBONATE\SODIUM CHLORIDE
     Indication: PRODUCT USED FOR UNKNOWN INDICATION
     Dosage: UNK
     Route: 065
     Dates: start: 20191129
  13. ADOPORT [Suspect]
     Active Substance: TACROLIMUS
     Dosage: 7 MG
     Route: 048
     Dates: start: 20191129, end: 20191130
  14. ADOPORT [Suspect]
     Active Substance: TACROLIMUS
     Dosage: 10 MG
     Route: 065
     Dates: start: 20191220, end: 20191224
  15. PREDNISONE. [Concomitant]
     Active Substance: PREDNISONE
     Dosage: UNK
     Route: 065
     Dates: end: 20200813
  16. CALCIDOSE VITAMINE D [Concomitant]
     Active Substance: CALCIUM\CHOLECALCIFEROL
     Indication: PRODUCT USED FOR UNKNOWN INDICATION
     Dosage: UNK
     Route: 065
     Dates: start: 20191130
  17. EUPRESSYL [Concomitant]
     Active Substance: URAPIDIL
     Indication: PRODUCT USED FOR UNKNOWN INDICATION
     Dosage: UNK
     Route: 065
     Dates: start: 20191130
  18. ADOPORT [Suspect]
     Active Substance: TACROLIMUS
     Dosage: 13 MG
     Route: 065
     Dates: start: 20191206, end: 20191214
  19. ADOPORT [Suspect]
     Active Substance: TACROLIMUS
     Dosage: 8 MG
     Route: 065
     Dates: start: 20191219, end: 20191220
  20. STROMECTOL [Concomitant]
     Active Substance: IVERMECTIN
     Indication: PRODUCT USED FOR UNKNOWN INDICATION
     Dosage: UNK
     Route: 065
     Dates: start: 20191127, end: 20191127
  21. GALVUS [Concomitant]
     Active Substance: VILDAGLIPTIN
     Indication: PRODUCT USED FOR UNKNOWN INDICATION
     Dosage: UNK
     Route: 065
     Dates: start: 20191207
  22. ADOPORT [Suspect]
     Active Substance: TACROLIMUS
     Indication: RENAL TRANSPLANT
     Dosage: 10 MG
     Route: 048
     Dates: start: 20191125
  23. ADOPORT [Suspect]
     Active Substance: TACROLIMUS
     Dosage: 10 MG
     Route: 065
     Dates: start: 20200126, end: 20200425
  24. METHYLPREDNISOLONE. [Concomitant]
     Active Substance: METHYLPREDNISOLONE
     Indication: RENAL TRANSPLANT
     Dosage: 500 MG
     Route: 065
     Dates: start: 20191125, end: 20191125
  25. METHYLPREDNISOLONE. [Concomitant]
     Active Substance: METHYLPREDNISOLONE
     Dosage: UNK
     Route: 065
     Dates: start: 20191126, end: 20191126
  26. CELLCEPT [Concomitant]
     Active Substance: MYCOPHENOLATE MOFETIL\MYCOPHENOLATE MOFETIL HYDROCHLORIDE
     Dosage: UNK
     Route: 065
     Dates: start: 20191126
  27. SPASFON [Concomitant]
     Indication: PRODUCT USED FOR UNKNOWN INDICATION
     Dosage: UNK
     Route: 065
     Dates: start: 20191127, end: 20191210
  28. CANDESARTAN. [Concomitant]
     Active Substance: CANDESARTAN
     Indication: PRODUCT USED FOR UNKNOWN INDICATION
     Dosage: UNK
     Route: 065
     Dates: start: 20191204
  29. ADOPORT [Suspect]
     Active Substance: TACROLIMUS
     Dosage: 13 MG
     Route: 048
     Dates: start: 20191125
  30. ADOPORT [Suspect]
     Active Substance: TACROLIMUS
     Dosage: 7 MG
     Route: 048
     Dates: start: 20191128
  31. ADOPORT [Suspect]
     Active Substance: TACROLIMUS
     Dosage: 10 MG
     Route: 065
     Dates: start: 20191201, end: 20191202
  32. ADOPORT [Suspect]
     Active Substance: TACROLIMUS
     Dosage: 14 MG
     Route: 048
     Dates: start: 20191224, end: 20200126
  33. PREDNISONE. [Concomitant]
     Active Substance: PREDNISONE
     Indication: RENAL TRANSPLANT
     Dosage: 20 MG
     Route: 065
     Dates: start: 20191128, end: 20191209
  34. METHYLPREDNISOLONE. [Concomitant]
     Active Substance: METHYLPREDNISOLONE
     Dosage: 120 MG
     Route: 065
     Dates: start: 20191127, end: 20191127
  35. GAVISCON [Concomitant]
     Active Substance: ALUMINUM HYDROXIDE\MAGNESIUM CARBONATE
     Indication: PRODUCT USED FOR UNKNOWN INDICATION
     Dosage: UNK
     Route: 065
     Dates: start: 20191129, end: 20191210
  36. NEBIVOLOL. [Concomitant]
     Active Substance: NEBIVOLOL
     Indication: PRODUCT USED FOR UNKNOWN INDICATION
     Dosage: UNK
     Route: 065
     Dates: start: 20191201
  37. ADOPORT [Suspect]
     Active Substance: TACROLIMUS
     Dosage: 7.5 MG
     Route: 048
     Dates: start: 20191127, end: 20191128
  38. ADOPORT [Suspect]
     Active Substance: TACROLIMUS
     Dosage: 10 MG
     Route: 065
     Dates: start: 20191202, end: 20191203
  39. ADOPORT [Suspect]
     Active Substance: TACROLIMUS
     Dosage: 12.5 MG
     Route: 048
     Dates: start: 20191205, end: 20191206
  40. ADOPORT [Suspect]
     Active Substance: TACROLIMUS
     Dosage: 12 MG
     Route: 065
     Dates: start: 20191214, end: 20191219
  41. CELLCEPT [Concomitant]
     Active Substance: MYCOPHENOLATE MOFETIL\MYCOPHENOLATE MOFETIL HYDROCHLORIDE
     Indication: PRODUCT USED FOR UNKNOWN INDICATION
     Dosage: UNK
     Route: 065
     Dates: start: 20191125
  42. BASILIXIMAB [Concomitant]
     Active Substance: BASILIXIMAB
     Indication: PRODUCT USED FOR UNKNOWN INDICATION
     Dosage: UNK
     Route: 065
     Dates: start: 20191126, end: 20191129

REACTIONS (27)
  - Hyperkalaemia [Recovered/Resolved]
  - Diarrhoea [Recovered/Resolved]
  - Anaemia [Recovered/Resolved]
  - Decreased appetite [Recovered/Resolved]
  - Hypotension [Recovered/Resolved]
  - Dyspepsia [Recovered/Resolved]
  - Thrombotic microangiopathy [Recovered/Resolved]
  - Iron deficiency [Recovered/Resolved]
  - Productive cough [Recovered/Resolved]
  - Accommodation disorder [Recovered/Resolved]
  - Lymphopenia [Recovering/Resolving]
  - Platelet count decreased [Unknown]
  - Hyponatraemia [Recovered/Resolved]
  - Anaemia [Recovered/Resolved]
  - Anaemia [Recovered/Resolved]
  - Lymphocele [Recovered/Resolved]
  - Steroid diabetes [Recovered/Resolved]
  - Cataract [Recovered/Resolved]
  - Tremor [Recovered/Resolved]
  - Vomiting [Recovered/Resolved]
  - Hypertension [Not Recovered/Not Resolved]
  - Hyperkalaemia [Recovered/Resolved]
  - Disturbance in attention [Recovered/Resolved]
  - Asthenia [Recovered/Resolved]
  - Osteoporosis [Not Recovered/Not Resolved]
  - Herpes zoster [Recovered/Resolved]
  - Metabolic acidosis [Recovered/Resolved]

NARRATIVE: CASE EVENT DATE: 20191126
